FAERS Safety Report 26028295 (Version 1)
Quarter: 2025Q4

REPORT INFORMATION
  Report Type: Spontaneous
  Country: EU (occurrence: EU)
  Receive Date: 20251111
  Receipt Date: 20251111
  Transmission Date: 20260117
  Serious: Yes (Death, Other)
  Sender: NOVARTIS
  Company Number: EU-002147023-NVSC2025SI173373

PATIENT

DRUGS (1)
  1. NILOTINIB [Suspect]
     Active Substance: NILOTINIB
     Indication: Chronic myeloid leukaemia
     Dosage: UNK
     Route: 065

REACTIONS (23)
  - Cardiac death [Fatal]
  - Blast cell proliferation [Unknown]
  - Cardiac failure [Unknown]
  - Atrial fibrillation [Unknown]
  - Electrocardiogram QT prolonged [Unknown]
  - Arrhythmia [Unknown]
  - Cardiac tamponade [Unknown]
  - Acute myocardial infarction [Unknown]
  - Cerebrovascular accident [Unknown]
  - Gangrene [Unknown]
  - Pancytopenia [Unknown]
  - Thrombocytopenia [Unknown]
  - Neutropenia [Unknown]
  - Diabetes mellitus [Unknown]
  - Peripheral arterial occlusive disease [Unknown]
  - Irritable bowel syndrome [Unknown]
  - Hypertension [Unknown]
  - Diarrhoea [Unknown]
  - Gynaecomastia [Unknown]
  - Rash [Unknown]
  - Pruritus [Unknown]
  - Eyelid discolouration [Unknown]
  - Infection [Unknown]
